FAERS Safety Report 7565829-X (Version None)
Quarter: 2011Q2

REPORT INFORMATION
  Report Type: 
  Country: None (occurrence: None)
  Receive Date: 20110623
  Receipt Date: 20110620
  Transmission Date: 20111010
  Serious: Yes (Hospitalization, Other)
  Sender: FDA-Public Use
  Company Number: US-PFIZER INC-2011138040

PATIENT
  Age: 20 Year
  Sex: Male

DRUGS (1)
  1. DILANTIN-125 [Suspect]
     Indication: EPILEPSY
     Dosage: UNK

REACTIONS (2)
  - DRUG DOSE OMISSION [None]
  - CONVULSION [None]
